FAERS Safety Report 4297763-5 (Version None)
Quarter: 2004Q1

REPORT INFORMATION
  Report Type: 
  Country: None (occurrence: None)
  Receive Date: 20040126
  Receipt Date: 20031103
  Transmission Date: 20041129
  Serious: No
  Sender: FDA-Public Use
  Company Number: USA031151578

PATIENT
  Age: 51 Year
  Sex: Male
  Weight: 84 kg

DRUGS (3)
  1. STRATTERA [Suspect]
     Indication: ATTENTION DEFICIT/HYPERACTIVITY DISORDER
     Dosage: 80MG/DAY
     Dates: end: 20031029
  2. PERCOCET [Concomitant]
  3. NEXIUM [Concomitant]

REACTIONS (4)
  - ABNORMAL BEHAVIOUR [None]
  - HYPOAESTHESIA [None]
  - MOOD SWINGS [None]
  - URINARY HESITATION [None]
